FAERS Safety Report 12606356 (Version 2)
Quarter: 2016Q3

REPORT INFORMATION
  Report Type: Spontaneous
  Country: US (occurrence: US)
  Receive Date: 20160729
  Receipt Date: 20160824
  Transmission Date: 20161109
  Serious: Yes (Other)
  Sender: FDA-Public Use
  Company Number: US-BAYER-2016-146813

PATIENT
  Age: 32 Year
  Sex: Female

DRUGS (2)
  1. MIRENA [Suspect]
     Active Substance: LEVONORGESTREL
     Dosage: 20 MCG/24HR, CONT
     Route: 015
     Dates: start: 20160719
  2. MIRENA [Suspect]
     Active Substance: LEVONORGESTREL
     Dosage: 20 MCG/24HR, CONT
     Route: 015
     Dates: start: 2014, end: 20160719

REACTIONS (6)
  - Menorrhagia [None]
  - Uterine leiomyoma [None]
  - Device expulsion [None]
  - Contraindicated device used [None]
  - Genital haemorrhage [None]
  - Device use error [None]

NARRATIVE: CASE EVENT DATE: 20160707
